FAERS Safety Report 12720358 (Version 1)
Quarter: 2016Q3

REPORT INFORMATION
  Report Type: Spontaneous
  Country: US (occurrence: US)
  Receive Date: 20160907
  Receipt Date: 20160907
  Transmission Date: 20161109
  Serious: Yes (Other)
  Sender: FDA-Public Use
  Company Number: US-GLAXOSMITHKLINE-US2016128142

PATIENT
  Age: 25 Year
  Sex: Female

DRUGS (3)
  1. PLAQUENIL [Concomitant]
     Active Substance: HYDROXYCHLOROQUINE SULFATE
  2. PREDNISONE. [Concomitant]
     Active Substance: PREDNISONE
  3. BENLYSTA [Suspect]
     Active Substance: BELIMUMAB
     Indication: SYSTEMIC LUPUS ERYTHEMATOSUS
     Dosage: 520 MG, CYC
     Route: 042
     Dates: start: 20160509

REACTIONS (5)
  - Systemic lupus erythematosus [Unknown]
  - Body temperature increased [Unknown]
  - Drug ineffective [Unknown]
  - Heart rate increased [Unknown]
  - Pain [Unknown]

NARRATIVE: CASE EVENT DATE: 20160831
